FAERS Safety Report 5024934-2 (Version None)
Quarter: 2006Q2

REPORT INFORMATION
  Report Type: 
  Country: None (occurrence: None)
  Receive Date: 20060607
  Receipt Date: 20060526
  Transmission Date: 20061013
  Serious: Yes (Life-Threatening)
  Sender: FDA-Public Use
  Company Number: IT-2006-012859

PATIENT
  Age: 48 Year
  Sex: Male

DRUGS (1)
  1. ULTRAVIST 370 [Suspect]
     Indication: COMPUTERISED TOMOGRAM ABDOMEN
     Dosage: 130 MG, 1 DOSE, IV DRIP
     Route: 041
     Dates: start: 20060518, end: 20060518

REACTIONS (1)
  - ANAPHYLACTIC SHOCK [None]
